FAERS Safety Report 8317158-4 (Version None)
Quarter: 2012Q2

REPORT INFORMATION
  Report Type: 
  Country: None (occurrence: None)
  Receive Date: 20120427
  Receipt Date: 20120418
  Transmission Date: 20120825
  Serious: Yes (Life-Threatening, Hospitalization)
  Sender: FDA-Public Use
  Company Number: GB-TEVA-333727ISR

PATIENT
  Age: 70 Year
  Sex: Male

DRUGS (7)
  1. NITROFURANTOIN [Suspect]
     Indication: PROPHYLAXIS URINARY TRACT INFECTION
     Dosage: AT NIGHT
     Route: 048
     Dates: end: 20120405
  2. METFORMIN HCL [Concomitant]
  3. FUROSEMIDE [Concomitant]
  4. SIMVASTATIN [Concomitant]
  5. ASPIRIN [Concomitant]
  6. TAMSULOSIN HCL [Concomitant]
  7. LISINOPRIL [Concomitant]

REACTIONS (3)
  - COUGH [None]
  - PULMONARY FIBROSIS [None]
  - RESPIRATORY FAILURE [None]
